FAERS Safety Report 18741439 (Version 1)
Quarter: 2021Q1

REPORT INFORMATION
  Report Type: Spontaneous
  Country: US (occurrence: US)
  Receive Date: 20210114
  Receipt Date: 20210114
  Transmission Date: 20210419
  Serious: No
  Sender: FDA-Public Use
  Company Number: US-ABBVIE-20K-163-3561329-00

PATIENT
  Age: 79 Year
  Sex: Female
  Weight: 59.02 kg

DRUGS (26)
  1. CARBIDOPA LEVODOPA [Concomitant]
     Active Substance: CARBIDOPA\LEVODOPA
     Indication: PRODUCT USED FOR UNKNOWN INDICATION
  2. LATANOPROST. [Concomitant]
     Active Substance: LATANOPROST
     Indication: GLAUCOMA
     Route: 047
  3. TRIAMCINOLONE [Concomitant]
     Active Substance: TRIAMCINOLONE
     Indication: VAGINAL DISORDER
     Route: 061
  4. QUETIAPINE. [Concomitant]
     Active Substance: QUETIAPINE
     Indication: HALLUCINATION
  5. BABY ASPIRIN [Concomitant]
     Active Substance: ASPIRIN
     Indication: SUPPLEMENTATION THERAPY
  6. MELATONIN [Concomitant]
     Active Substance: MELATONIN
     Indication: SUPPLEMENTATION THERAPY
  7. MIDODRINE [Concomitant]
     Active Substance: MIDODRINE
     Indication: BLOOD PRESSURE MEASUREMENT
  8. TURMERIC [Concomitant]
     Active Substance: HERBALS\TURMERIC
     Indication: SUPPLEMENTATION THERAPY
  9. DONEPEZIL. [Concomitant]
     Active Substance: DONEPEZIL
     Indication: MEMORY IMPAIRMENT
  10. MEMANTINE. [Concomitant]
     Active Substance: MEMANTINE
     Indication: MEMORY IMPAIRMENT
  11. MYRBETRIQ [Concomitant]
     Active Substance: MIRABEGRON
     Indication: URINARY INCONTINENCE
  12. IBUPROFEN. [Concomitant]
     Active Substance: IBUPROFEN
     Indication: PAIN
  13. ROPINIROLE. [Concomitant]
     Active Substance: ROPINIROLE
     Indication: RESTLESS LEGS SYNDROME
  14. TRIMETHOPRIM. [Concomitant]
     Active Substance: TRIMETHOPRIM
     Indication: URINARY TRACT DISORDER
  15. SIMVASTATIN. [Concomitant]
     Active Substance: SIMVASTATIN
     Indication: BLOOD CHOLESTEROL
  16. FOLIC ACID B?6 + B?12 [Concomitant]
     Indication: SUPPLEMENTATION THERAPY
  17. INTRAROSA [Concomitant]
     Active Substance: PRASTERONE
     Indication: VAGINAL DISORDER
  18. TIZANIDINE. [Concomitant]
     Active Substance: TIZANIDINE
     Indication: RESTLESS LEGS SYNDROME
  19. VITAMIN D3 [Concomitant]
     Active Substance: CHOLECALCIFEROL
     Indication: SUPPLEMENTATION THERAPY
  20. METAMUCIL [Concomitant]
     Active Substance: PLANTAGO SEED
     Indication: SUPPLEMENTATION THERAPY
  21. DUOPA [Suspect]
     Active Substance: CARBIDOPA\LEVODOPA
     Indication: PRODUCT USED FOR UNKNOWN INDICATION
     Route: 050
     Dates: start: 20200902
  22. DUOPA [Suspect]
     Active Substance: CARBIDOPA\LEVODOPA
  23. ESCITALOPRAM [Concomitant]
     Active Substance: ESCITALOPRAM OXALATE
     Indication: ANXIETY
  24. DOMPERIDON [Concomitant]
     Active Substance: DOMPERIDONE
     Indication: GASTRIC DISORDER
  25. FLUTICASONE. [Concomitant]
     Active Substance: FLUTICASONE
     Indication: PRODUCT USED FOR UNKNOWN INDICATION
  26. FISH OIL [Concomitant]
     Active Substance: FISH OIL
     Indication: SUPPLEMENTATION THERAPY

REACTIONS (9)
  - Dizziness [Recovering/Resolving]
  - Hallucination [Recovering/Resolving]
  - Gastric disorder [Recovering/Resolving]
  - Motor dysfunction [Recovering/Resolving]
  - On and off phenomenon [Recovering/Resolving]
  - Listless [Recovering/Resolving]
  - Hypotension [Recovering/Resolving]
  - Device occlusion [Recovered/Resolved]
  - Nausea [Recovering/Resolving]

NARRATIVE: CASE EVENT DATE: 202009
